FAERS Safety Report 7919713-X (Version None)
Quarter: 2011Q4

REPORT INFORMATION
  Report Type: 
  Country: None (occurrence: None)
  Receive Date: 20111115
  Receipt Date: 20111103
  Transmission Date: 20120403
  Serious: Yes (Other)
  Sender: FDA-Public Use
  Company Number: 2011SP051971

PATIENT
  Sex: Female

DRUGS (3)
  1. PEG-INTRON [Suspect]
     Indication: HEPATITIS C
     Dates: start: 20111006
  2. RIBAVIRIN [Suspect]
     Indication: HEPATITIS C
     Dates: start: 20111006
  3. VICTRELIS [Suspect]
     Indication: HEPATITIS C
     Dates: start: 20111103

REACTIONS (6)
  - DIZZINESS [None]
  - DIARRHOEA [None]
  - MALAISE [None]
  - VOMITING [None]
  - DEHYDRATION [None]
  - HEADACHE [None]
